FAERS Safety Report 4885734-7 (Version None)
Quarter: 2006Q1

REPORT INFORMATION
  Report Type: 
  Country: None (occurrence: None)
  Receive Date: 20060117
  Receipt Date: 20060103
  Transmission Date: 20060701
  Serious: Yes (Hospitalization)
  Sender: FDA-Public Use
  Company Number: 2006004881

PATIENT
  Age: 24 Year
  Sex: Female
  Weight: 56 kg

DRUGS (5)
  1. SINEQUAN [Suspect]
     Indication: DEPRESSION
     Dosage: 200 MG (50 MG, 1 IN 1 D), ORAL
     Route: 048
     Dates: start: 20051115
  2. BEXIN (DEXTROMETHORPHAN HYDROBROMIDE) [Suspect]
     Indication: EPILEPSY
     Dosage: 600 MG (25 MG), ORAL
     Route: 048
     Dates: start: 20051129, end: 20051129
  3. BEXIN (DEXTROMETHORPHAN HYDROBROMIDE) [Suspect]
     Indication: SEDATION
     Dosage: 600 MG (25 MG), ORAL
     Route: 048
     Dates: start: 20051129, end: 20051129
  4. PRAZINE / NEZ / (PROMAZINE HYDROCHLORIDE) [Suspect]
     Indication: PERSONALITY DISORDER
     Dosage: 400 MG (100 MG, 1 D), ORAL
     Route: 048
     Dates: start: 20051115
  5. SEROQUEL [Concomitant]

REACTIONS (7)
  - COORDINATION ABNORMAL [None]
  - DIFFICULTY IN WALKING [None]
  - DISORIENTATION [None]
  - DRUG INTERACTION [None]
  - MULTIPLE DRUG OVERDOSE INTENTIONAL [None]
  - SUICIDE ATTEMPT [None]
  - TACHYCARDIA [None]
